FAERS Safety Report 5951648-4 (Version None)
Quarter: 2008Q4

REPORT INFORMATION
  Report Type: 
  Country: None (occurrence: None)
  Receive Date: 20081113
  Receipt Date: 20081030
  Transmission Date: 20090506
  Serious: Yes (Life-Threatening, Hospitalization, Disabling)
  Sender: FDA-Public Use
  Company Number: GB-GENENTECH-271006

PATIENT
  Age: 67 Year
  Sex: Female

DRUGS (11)
  1. MABTHERA [Suspect]
     Indication: LYMPHOMA
     Dosage: 500 MG, UNK
     Route: 042
     Dates: start: 20080312, end: 20080403
  2. CYCLOPHOSPHAMIDE [Concomitant]
     Indication: LYMPHOMA
     Dosage: UNK
     Dates: start: 20080312, end: 20080403
  3. DOXORUBICIN HCL [Concomitant]
     Indication: LYMPHOMA
     Dosage: UNK
     Dates: start: 20080312, end: 20080403
  4. PREDNISONE TAB [Concomitant]
     Indication: LYMPHOMA
     Dosage: UNK
     Dates: start: 20080312, end: 20080403
  5. VINCRISTINE [Concomitant]
     Indication: LYMPHOMA
     Dosage: UNK
     Dates: start: 20080312, end: 20080403
  6. BENZYLPENICILLIN [Concomitant]
     Indication: DRUG USE FOR UNKNOWN INDICATION
     Dosage: UNK
     Dates: start: 20080223
  7. CARBIMAZOLE [Concomitant]
     Indication: DRUG USE FOR UNKNOWN INDICATION
     Dosage: UNK
     Dates: start: 20080218
  8. CLEXANE [Concomitant]
     Indication: DRUG USE FOR UNKNOWN INDICATION
  9. DOXORUBICIN HCL [Concomitant]
     Indication: DRUG USE FOR UNKNOWN INDICATION
  10. LERCANIDIPINE [Concomitant]
     Indication: DRUG USE FOR UNKNOWN INDICATION
  11. VINCRISTINE [Concomitant]
     Indication: DRUG USE FOR UNKNOWN INDICATION

REACTIONS (2)
  - LUNG INJURY [None]
  - RESPIRATORY DISTRESS [None]
